FAERS Safety Report 8173023-7 (Version None)
Quarter: 2012Q1

REPORT INFORMATION
  Report Type: 
  Country: None (occurrence: None)
  Receive Date: 20120223
  Receipt Date: 20120210
  Transmission Date: 20120608
  Serious: Yes (Death)
  Sender: FDA-Public Use
  Company Number: JPI-P-011975

PATIENT
  Age: 66 Year
  Sex: Male

DRUGS (1)
  1. XYREM [Suspect]
     Indication: NARCOLEPSY
     Dosage: 4.5 GM (2.25 GM, 2 IN 1 D), ORAL, 6 GM (3 GM, 2 IN 1 D), ORAL
     Route: 048
     Dates: start: 20070411

REACTIONS (4)
  - CORONARY ARTERY THROMBOSIS [None]
  - ORAL NEOPLASM BENIGN [None]
  - CARDIO-RESPIRATORY ARREST [None]
  - HYPERLIPIDAEMIA [None]
